FAERS Safety Report 8497034-7 (Version None)
Quarter: 2012Q3

REPORT INFORMATION
  Report Type: 
  Country: None (occurrence: None)
  Receive Date: 20120709
  Receipt Date: 20120601
  Transmission Date: 20120928
  Serious: No
  Sender: FDA-Public Use
  Company Number: US-AMGEN-USASP2012034558

PATIENT
  Age: 64 Year
  Sex: Male

DRUGS (3)
  1. ENBREL [Suspect]
     Indication: PSORIATIC ARTHROPATHY
  2. ENBREL [Suspect]
     Indication: RHEUMATOID ARTHRITIS
     Dosage: 50 MG, QWK
     Dates: start: 20120520
  3. METHOTREXATE [Concomitant]
     Dosage: 6 MG, UNK
     Dates: start: 20070101

REACTIONS (4)
  - FATIGUE [None]
  - SLEEP DISORDER [None]
  - DRUG INEFFECTIVE [None]
  - NERVE COMPRESSION [None]
